FAERS Safety Report 8309982-9 (Version None)
Quarter: 2012Q2

REPORT INFORMATION
  Report Type: 
  Country: None (occurrence: None)
  Receive Date: 20120425
  Receipt Date: 20120421
  Transmission Date: 20120825
  Serious: Yes (Other)
  Sender: FDA-Public Use
  Company Number: US-PFIZER INC-2012098710

PATIENT
  Sex: Female
  Weight: 113 kg

DRUGS (12)
  1. EFFEXOR XR [Concomitant]
     Indication: DEPRESSION
     Dosage: 225 MG, DAILY
     Route: 048
  2. VITAMIN TAB [Concomitant]
     Dosage: UNK
  3. LYRICA [Suspect]
     Indication: MULTIPLE SCLEROSIS
     Dosage: 100 MG, 5XDAY
  4. LAMICTAL [Concomitant]
     Indication: AFFECTIVE DISORDER
     Dosage: UNK
  5. BACLOFEN [Concomitant]
     Indication: MULTIPLE SCLEROSIS
     Dosage: 20 MG, 2X/DAY
  6. DESOXIMETASONE [Suspect]
     Indication: GRANULOMA ANNULARE
     Dosage: UNK
     Route: 061
  7. TOPAMAX [Concomitant]
     Indication: AFFECTIVE DISORDER
     Dosage: 25 MG IN MORNING AND 50 MG AT NIGHT
  8. JANUVIA [Concomitant]
     Dosage: UNK
  9. COLACE [Concomitant]
     Indication: ABNORMAL FAECES
     Dosage: UNK, 2X/DAY
  10. TRAZODONE [Concomitant]
     Indication: DEPRESSION
     Dosage: 200 MG, DAILY
  11. AMANTADINE [Concomitant]
     Indication: CHRONIC FATIGUE SYNDROME
     Dosage: UNK, DAILY
  12. COPAXONE [Concomitant]
     Dosage: UNK

REACTIONS (3)
  - GRANULOMA ANNULARE [None]
  - DRUG ADMINISTRATION ERROR [None]
  - GASTRIC BYPASS [None]
